FAERS Safety Report 16056866 (Version 1)
Quarter: 2019Q2

REPORT INFORMATION
  Report Type: Spontaneous
  Country: US (occurrence: US)
  Receive Date: 20190311
  Receipt Date: 20190311
  Transmission Date: 20190711
  Serious: Yes (Life-Threatening, Hospitalization)
  Sender: FDA-Public Use
  Company Number: None

PATIENT
  Age: 92 Year
  Sex: Female
  Weight: 69 kg

DRUGS (16)
  1. SYNTHROID 75MG TAB [Concomitant]
     Dates: start: 20180910
  2. HEPARIN 5000 UNITS [Concomitant]
     Dates: start: 20190309, end: 20190309
  3. OMEPRAZOLE 20MG CAP [Concomitant]
     Dates: start: 20180910
  4. MORPHINE PF 2MG INJ [Concomitant]
     Dates: start: 20190309
  5. CEFTRIAXONE 1 GRAM [Concomitant]
     Dates: start: 20190309, end: 20190309
  6. LACTATED RINGER^S INFUSION [Concomitant]
     Dates: start: 20190309, end: 20190310
  7. ASPIRIN 81MG TABS [Concomitant]
     Dates: start: 20180924
  8. FLUCONAZOLE 100MG TABS [Concomitant]
     Active Substance: FLUCONAZOLE
     Dates: start: 20190308, end: 20190308
  9. ONDANSETRON 4MG [Concomitant]
     Active Substance: ONDANSETRON
     Dates: start: 20190309
  10. ULORIC [Suspect]
     Active Substance: FEBUXOSTAT
     Indication: GOUT
     Route: 048
     Dates: start: 20180924, end: 20190311
  11. METFORMIN [Concomitant]
     Active Substance: METFORMIN HYDROCHLORIDE
     Dates: start: 20180910
  12. NYSTATIN 100,000 UNITS/GRAM OINT [Concomitant]
     Dates: start: 20190308
  13. CEPHALEXIN 500MG CAPS [Concomitant]
     Active Substance: CEPHALEXIN
     Dates: start: 20190308, end: 20190308
  14. HYDROXYUREA 500MG CAP [Concomitant]
     Active Substance: HYDROXYUREA
     Dates: start: 20180904
  15. LOSARTAN 25MG TAB [Concomitant]
     Dates: start: 20180910
  16. MELATONIN 15MG TAB [Concomitant]
     Dates: start: 20190309

REACTIONS (1)
  - Acute myocardial infarction [None]

NARRATIVE: CASE EVENT DATE: 20190310
